FAERS Safety Report 17777732 (Version 2)
Quarter: 2020Q4

REPORT INFORMATION
  Report Type: Spontaneous
  Country: US (occurrence: US)
  Receive Date: 20200513
  Receipt Date: 20201222
  Transmission Date: 20210113
  Serious: Yes (Other)
  Sender: FDA-Public Use
  Company Number: US-GILEAD-2020-0465924

PATIENT
  Age: 56 Year
  Sex: Female

DRUGS (3)
  1. ODEFSEY [Concomitant]
     Active Substance: EMTRICITABINE\RILPIVIRINE HYDROCHLORIDE\TENOFOVIR ALAFENAMIDE FUMARATE
  2. VIREAD [Suspect]
     Active Substance: TENOFOVIR DISOPROXIL FUMARATE
     Indication: HIV INFECTION
     Dosage: UNK
     Route: 048
     Dates: start: 2009, end: 2017
  3. ATRIPLA [Suspect]
     Active Substance: EFAVIRENZ\EMTRICITABINE\TENOFOVIR DISOPROXIL FUMARATE
     Indication: HIV INFECTION
     Dosage: UNK
     Route: 048
     Dates: start: 20091230, end: 2017

REACTIONS (9)
  - Tooth fracture [Recovered/Resolved]
  - Osteonecrosis [Recovered/Resolved]
  - Protein total abnormal [Unknown]
  - Bone loss [Unknown]
  - Renal injury [Unknown]
  - Multiple fractures [Unknown]
  - Skeletal injury [Unknown]
  - Bone density decreased [Recovered/Resolved]
  - Tooth loss [Unknown]

NARRATIVE: CASE EVENT DATE: 20161215
